FAERS Safety Report 20368520 (Version 1)
Quarter: 2022Q1

REPORT INFORMATION
  Report Type: Other
  Country: US (occurrence: None)
  Receive Date: 20220124
  Receipt Date: 20220124
  Transmission Date: 20220423
  Serious: Yes (Other)
  Sender: FDA-Public Use
  Company Number: US-ROCHE-3005344

PATIENT

DRUGS (1)
  1. COBIMETINIB [Suspect]
     Active Substance: COBIMETINIB
     Indication: Rosai-Dorfman syndrome
     Route: 065

REACTIONS (5)
  - Anaemia [Unknown]
  - Left ventricular dysfunction [Unknown]
  - Diarrhoea [Unknown]
  - Skin toxicity [Unknown]
  - Blood creatinine increased [Unknown]
